FAERS Safety Report 18532721 (Version 6)
Quarter: 2021Q1

REPORT INFORMATION
  Report Type: Spontaneous
  Country: US (occurrence: US)
  Receive Date: 20201123
  Receipt Date: 20210209
  Transmission Date: 20210419
  Serious: No
  Sender: FDA-Public Use
  Company Number: US-SA-2020SA326660

PATIENT
  Age: 76 Year
  Sex: Female

DRUGS (1)
  1. LANTUS [Suspect]
     Active Substance: INSULIN GLARGINE
     Indication: TYPE 2 DIABETES MELLITUS
     Dosage: 52 IU, QD
     Route: 065

REACTIONS (10)
  - Needle issue [Unknown]
  - Gait inability [Unknown]
  - Injection site pain [Unknown]
  - Injection site haemorrhage [Unknown]
  - Clumsiness [Unknown]
  - Visual impairment [Unknown]
  - Wrong technique in device usage process [Unknown]
  - Diabetic neuropathy [Unknown]
  - Device operational issue [Unknown]
  - Injection site bruising [Unknown]
